FAERS Safety Report 20622358 (Version 2)
Quarter: 2023Q2

REPORT INFORMATION
  Report Type: Other
  Country: US (occurrence: None)
  Receive Date: 20220322
  Receipt Date: 20230424
  Transmission Date: 20230721
  Serious: Yes (Hospitalization)
  Sender: FDA-Public Use
  Company Number: US-ROCHE-3049804

PATIENT
  Age: 68 Year
  Sex: Female

DRUGS (1)
  1. ENSPRYNG [Suspect]
     Active Substance: SATRALIZUMAB-MWGE
     Indication: Neuromyelitis optica spectrum disorder
     Dosage: INJECT 120MG SUBCUTANEOUSLY EVERY MONTH
     Route: 058

REACTIONS (2)
  - Multiple sclerosis [Unknown]
  - Pain [Unknown]
